FAERS Safety Report 21092346 (Version 2)
Quarter: 2022Q3

REPORT INFORMATION
  Report Type: Report from Study
  Country: US (occurrence: US)
  Receive Date: 20220718
  Receipt Date: 20220725
  Transmission Date: 20221027
  Serious: No
  Sender: FDA-Public Use
  Company Number: US-NOVARTISTESTPH-NVSC2022US160998

PATIENT
  Sex: Male

DRUGS (1)
  1. ENTRESTO [Suspect]
     Active Substance: SACUBITRIL\VALSARTAN
     Indication: Product used for unknown indication
     Dosage: 1 DOSAGE FORM, BID
     Route: 065
     Dates: start: 2020

REACTIONS (6)
  - Appetite disorder [Unknown]
  - Weight fluctuation [Unknown]
  - Sluggishness [Unknown]
  - Sleep disorder [Unknown]
  - Fatigue [Unknown]
  - Dizziness [Unknown]
